FAERS Safety Report 19751743 (Version 1)
Quarter: 2021Q3

REPORT INFORMATION
  Report Type: Spontaneous
  Country: FR (occurrence: FR)
  Receive Date: 20210827
  Receipt Date: 20210827
  Transmission Date: 20211014
  Serious: Yes (Other)
  Sender: FDA-Public Use
  Company Number: FR-BRISTOL-MYERS SQUIBB COMPANY-BMS-2021-084240

PATIENT
  Age: 62 Year
  Sex: Female

DRUGS (2)
  1. ELIQUIS [Suspect]
     Active Substance: APIXABAN
     Indication: DEEP VEIN THROMBOSIS
     Dosage: 5 MILLIGRAM
     Route: 065
     Dates: start: 202004
  2. ELIQUIS [Suspect]
     Active Substance: APIXABAN
     Indication: PULMONARY EMBOLISM

REACTIONS (15)
  - Dizziness [Unknown]
  - Fatigue [Unknown]
  - Alopecia [Unknown]
  - Muscular weakness [Unknown]
  - Weight increased [Unknown]
  - Type 2 diabetes mellitus [Unknown]
  - Coagulation factor V level abnormal [Unknown]
  - Dyspnoea [Unknown]
  - Headache [Unknown]
  - Back pain [Unknown]
  - Insomnia [Unknown]
  - Abdominal distension [Unknown]
  - Dry eye [Unknown]
  - Lethargy [Unknown]
  - Vision blurred [Unknown]
